FAERS Safety Report 25722387 (Version 1)
Quarter: 2025Q3

REPORT INFORMATION
  Report Type: Spontaneous
  Country: JP (occurrence: JP)
  Receive Date: 20250825
  Receipt Date: 20250825
  Transmission Date: 20251021
  Serious: Yes (Death, Hospitalization)
  Sender: EISAI
  Company Number: JP-Eisai-202506363_LEN-RCC_P_1

PATIENT
  Age: 85 Year
  Sex: Male

DRUGS (2)
  1. LENVIMA [Suspect]
     Active Substance: LENVATINIB
     Indication: Renal cell carcinoma
     Route: 048
     Dates: start: 20250722, end: 202508
  2. KEYTRUDA [Suspect]
     Active Substance: PEMBROLIZUMAB
     Indication: Renal cell carcinoma
     Route: 041
     Dates: start: 20250722, end: 202508

REACTIONS (2)
  - Toxic epidermal necrolysis [Fatal]
  - Sepsis [Fatal]

NARRATIVE: CASE EVENT DATE: 20250801
